FAERS Safety Report 7306789-6 (Version None)
Quarter: 2011Q1

REPORT INFORMATION
  Report Type: 
  Country: None (occurrence: None)
  Receive Date: 20110222
  Receipt Date: 20101227
  Transmission Date: 20110831
  Serious: Yes (Other)
  Sender: FDA-Public Use
  Company Number: US-BAYER-200943712NA

PATIENT
  Sex: Male
  Weight: 76 kg

DRUGS (32)
  1. OPTIMARK [Suspect]
     Indication: ANGIOGRAM
  2. OPTIMARK [Suspect]
     Indication: NUCLEAR MAGNETIC RESONANCE IMAGING
  3. CONTRAST MEDIA [Suspect]
     Indication: NUCLEAR MAGNETIC RESONANCE IMAGING
     Dates: start: 20010122, end: 20010122
  4. MEGLUMINE AMIDOTRIZOATE [Concomitant]
     Indication: ARTHROGRAM
  5. MAGNEVIST [Suspect]
     Indication: ANGIOGRAM
     Route: 042
     Dates: start: 20010109, end: 20010109
  6. CONTRAST MEDIA [Suspect]
     Dates: start: 20030218, end: 20030218
  7. NEPHROCAPS [Concomitant]
  8. AMIODARONE HCL [Concomitant]
     Indication: HEART RATE IRREGULAR
  9. SEVELAMER [Concomitant]
  10. ROCALTROL [Concomitant]
  11. VERAPAMIL [Concomitant]
  12. FERRLECIT [Concomitant]
  13. MULTIHANCE [Suspect]
     Indication: NUCLEAR MAGNETIC RESONANCE IMAGING
  14. IRON [Concomitant]
  15. MEGLUMINE AMIDOTRIZOATE [Concomitant]
     Indication: MUSCULOSKELETAL PAIN
  16. PROHANCE [Suspect]
     Indication: NUCLEAR MAGNETIC RESONANCE IMAGING
  17. CONTRAST MEDIA [Suspect]
     Route: 042
     Dates: start: 20021105, end: 20021105
  18. MAGNEVIST [Suspect]
     Indication: NUCLEAR MAGNETIC RESONANCE IMAGING
  19. PROHANCE [Suspect]
     Indication: ANGIOGRAM
  20. CONTRAST MEDIA [Suspect]
     Route: 042
     Dates: start: 20021105, end: 20021105
  21. CALCIUM CARBONATE W/VITAMIN D NOS [Concomitant]
  22. ZEMPLAR [Concomitant]
  23. OMNISCAN [Suspect]
     Indication: ANGIOGRAM
  24. PHOSLO [Concomitant]
  25. LOPRESSOR [Concomitant]
  26. HECTOROL [Concomitant]
  27. MAGNEVIST [Suspect]
  28. OMNISCAN [Suspect]
     Indication: NUCLEAR MAGNETIC RESONANCE IMAGING
  29. CONTRAST MEDIA [Suspect]
     Indication: ANGIOGRAM
     Route: 014
     Dates: start: 19991215, end: 19991215
  30. CONTRAST MEDIA [Suspect]
     Route: 042
     Dates: start: 20011101, end: 20011101
  31. MULTIHANCE [Suspect]
     Indication: ANGIOGRAM
  32. EPOGEN [Concomitant]
     Indication: ANAEMIA

REACTIONS (17)
  - SKIN TIGHTNESS [None]
  - ARTHRALGIA [None]
  - PAIN IN EXTREMITY [None]
  - NEPHROGENIC SYSTEMIC FIBROSIS [None]
  - PAIN [None]
  - RASH PAPULAR [None]
  - SKIN PLAQUE [None]
  - SKIN DISORDER [None]
  - MUSCULOSKELETAL STIFFNESS [None]
  - PAPULE [None]
  - EXTREMITY CONTRACTURE [None]
  - SKIN INDURATION [None]
  - ERYTHEMA [None]
  - SKIN HYPERTROPHY [None]
  - JOINT RANGE OF MOTION DECREASED [None]
  - FATIGUE [None]
  - HYPERKERATOSIS [None]
